FAERS Safety Report 4704222-1 (Version None)
Quarter: 2005Q2

REPORT INFORMATION
  Report Type: 
  Country: None (occurrence: None)
  Receive Date: 20050627
  Receipt Date: 20050110
  Transmission Date: 20051028
  Serious: Yes (Other)
  Sender: FDA-Public Use
  Company Number: US-JNJFOC-20040909227

PATIENT
  Age: 83 Year
  Sex: Female
  Weight: 68.0396 kg

DRUGS (16)
  1. DURAGESIC-100 [Suspect]
     Indication: PAIN
     Dosage: 25 UG/HR, 1 IN 72 HOUR, TRANSDERMAL
     Route: 062
     Dates: start: 20030701
  2. POTASSIUM CHLORIDE [Concomitant]
  3. PLAVIX [Concomitant]
  4. SKELAKIN (METAXALONE) [Concomitant]
  5. CALCIUM (CALCIUM) [Concomitant]
  6. ALLEGRA-D [Concomitant]
  7. PREVACID (LANSOPRAZOLE SODIUM) [Concomitant]
  8. SYNTHROID [Concomitant]
  9. CERTAGEN (CERTAGEN) [Concomitant]
  10. DARVOCET-N (PROPACET) [Concomitant]
  11. EVISTA [Concomitant]
  12. ASPIRIN [Concomitant]
  13. DIOVAN [Concomitant]
  14. ZYPREXA [Concomitant]
  15. HYDROCHLOROTHIAZIDE [Concomitant]
  16. PAXIL [Concomitant]

REACTIONS (1)
  - SOMNOLENCE [None]
